FAERS Safety Report 5542625-6 (Version None)
Quarter: 2007Q4

REPORT INFORMATION
  Report Type: 
  Country: None (occurrence: None)
  Receive Date: 20071206
  Receipt Date: 20071206
  Transmission Date: 20080405
  Serious: No
  Sender: FDA-Public Use
  Company Number: None

PATIENT
  Age: 41 Year
  Sex: Male
  Weight: 108.8633 kg

DRUGS (3)
  1. NARDIL [Suspect]
     Indication: DEPRESSION
     Dosage: 90 MG.  30 MG. T.I.D  PO
     Route: 048
     Dates: start: 19930401, end: 20071205
  2. NARDIL [Suspect]
     Indication: GENERALISED ANXIETY DISORDER
     Dosage: 90 MG.  30 MG. T.I.D  PO
     Route: 048
     Dates: start: 19930401, end: 20071205
  3. NARDIL [Suspect]
     Indication: SOCIAL PHOBIA
     Dosage: 90 MG.  30 MG. T.I.D  PO
     Route: 048
     Dates: start: 19930401, end: 20071205

REACTIONS (3)
  - DRUG INEFFECTIVE [None]
  - DRUG WITHDRAWAL SYNDROME [None]
  - PHARMACEUTICAL PRODUCT COMPLAINT [None]
